FAERS Safety Report 6599535-5 (Version None)
Quarter: 2010Q1

REPORT INFORMATION
  Report Type: 
  Country: None (occurrence: None)
  Receive Date: 20100224
  Receipt Date: 20100212
  Transmission Date: 20100710
  Serious: Yes (Hospitalization)
  Sender: FDA-Public Use
  Company Number: FR-ROCHE-685396

PATIENT
  Sex: Male

DRUGS (1)
  1. ROACCUTANE [Suspect]
     Indication: ACNE
     Route: 048
     Dates: start: 20081101, end: 20090601

REACTIONS (3)
  - DEPRESSION [None]
  - HYPOMANIA [None]
  - SUICIDE ATTEMPT [None]
